FAERS Safety Report 7632112-3 (Version None)
Quarter: 2011Q3

REPORT INFORMATION
  Report Type: 
  Country: None (occurrence: None)
  Receive Date: 20110725
  Receipt Date: 20110725
  Transmission Date: 20111222
  Serious: Yes (Life-Threatening)
  Sender: FDA-Public Use
  Company Number: None

PATIENT
  Sex: Female
  Weight: 88.904 kg

DRUGS (4)
  1. SAPHRIS [Concomitant]
  2. VENLAFAXINE HCL EXTENDED-RELEASE [Suspect]
     Indication: MAJOR DEPRESSION
     Dosage: 600 MG
     Route: 048
     Dates: start: 20110620, end: 20110721
  3. TOPIRAMATE [Concomitant]
     Route: 048
  4. CLONAZEPAM [Concomitant]
     Route: 048

REACTIONS (10)
  - MAJOR DEPRESSION [None]
  - ORTHOSTATIC HYPOTENSION [None]
  - SUICIDAL IDEATION [None]
  - DEPRESSION SUICIDAL [None]
  - INCORRECT DOSE ADMINISTERED [None]
  - DISEASE RECURRENCE [None]
  - PRODUCT SUBSTITUTION ISSUE [None]
  - SUICIDAL BEHAVIOUR [None]
  - TREMOR [None]
  - AUTONOMIC NERVOUS SYSTEM IMBALANCE [None]
